FAERS Safety Report 5804931-7 (Version None)
Quarter: 2008Q3

REPORT INFORMATION
  Report Type: 
  Country: None (occurrence: None)
  Receive Date: 20080709
  Receipt Date: 20080701
  Transmission Date: 20090109
  Serious: Yes (Hospitalization)
  Sender: FDA-Public Use
  Company Number: PHBS2008IT04994

PATIENT
  Age: 77 Year
  Sex: Female

DRUGS (1)
  1. CARBAMAZEPINE [Suspect]
     Indication: EPILEPSY
     Dosage: UNK
     Route: 065

REACTIONS (12)
  - ABNORMAL BEHAVIOUR [None]
  - APATHY [None]
  - COGNITIVE DISORDER [None]
  - CONFABULATION [None]
  - CONFUSIONAL STATE [None]
  - GAIT DISTURBANCE [None]
  - HALLUCINATION [None]
  - HYPONATRAEMIA [None]
  - INAPPROPRIATE AFFECT [None]
  - MEMORY IMPAIRMENT [None]
  - SOMNOLENCE [None]
  - STATUS EPILEPTICUS [None]
